FAERS Safety Report 23928381 (Version 2)
Quarter: 2025Q3

REPORT INFORMATION
  Report Type: Spontaneous
  Country: US (occurrence: US)
  Receive Date: 20240531
  Receipt Date: 20250703
  Transmission Date: 20251020
  Serious: No
  Sender: RADIUS PHARM
  Company Number: US-RADIUS HEALTH INC.-2024US001022

PATIENT
  Sex: Female

DRUGS (1)
  1. TYMLOS [Suspect]
     Active Substance: ABALOPARATIDE
     Indication: Senile osteoporosis
     Route: 058
     Dates: start: 202311

REACTIONS (6)
  - Back pain [Recovering/Resolving]
  - Pain in extremity [Recovering/Resolving]
  - Intentional dose omission [Unknown]
  - Arthralgia [Recovering/Resolving]
  - Insomnia [Unknown]
  - Pain [Unknown]
